FAERS Safety Report 9840493 (Version 1)
Quarter: 2013Q4

REPORT INFORMATION
  Report Type: Spontaneous
  Country: US (occurrence: None)
  Receive Date: 20131211
  Receipt Date: 20131211
  Transmission Date: 20140711
  Serious: Yes (Hospitalization)
  Sender: FDA-Public Use
  Company Number: TKT01200700056

PATIENT
  Age: 7 Year
  Sex: Male
  Weight: 30 kg

DRUGS (1)
  1. IDURSULFASE [Suspect]
     Indication: MUCOPOLYSACCHARIDOSIS II
     Route: 042
     Dates: start: 20060920

REACTIONS (4)
  - Respiratory disorder [None]
  - Condition aggravated [None]
  - Pyrexia [None]
  - Hypoxia [None]
